FAERS Safety Report 8852930 (Version 3)
Quarter: 2014Q2

REPORT INFORMATION
  Report Type: Spontaneous
  Country: US (occurrence: US)
  Receive Date: 20121022
  Receipt Date: 20130810
  Transmission Date: 20141212
  Serious: Yes (Hospitalization, Other)
  Sender: FDA-Public Use
  Company Number: US-BAXTER-2012BAX019979

PATIENT
  Age: 76 Year
  Sex: Female

DRUGS (1)
  1. DIANEAL LOW CALCIUM [Suspect]
     Indication: PERITONEAL DIALYSIS
     Dosage: 2 LITERS
     Route: 033
     Dates: start: 20080220

REACTIONS (5)
  - Pancreatitis acute [Recovering/Resolving]
  - Duodenal ulcer [Recovering/Resolving]
  - Rectal ulcer [Recovering/Resolving]
  - Malaise [Unknown]
  - Constipation [Recovered/Resolved]
